FAERS Safety Report 4744458-7 (Version None)
Quarter: 2005Q3

REPORT INFORMATION
  Report Type: 
  Country: None (occurrence: None)
  Receive Date: 20050809
  Receipt Date: 20050729
  Transmission Date: 20060218
  Serious: Yes (Other)
  Sender: FDA-Public Use
  Company Number: 2005108908

PATIENT
  Age: 75 Year
  Sex: Female
  Weight: 68.0396 kg

DRUGS (5)
  1. LIPITOR [Suspect]
     Indication: BLOOD CHOLESTEROL INCREASED
     Dosage: 20 MG (20 MG, 1 IN 1 D),
  2. PROCARDIA [Suspect]
     Indication: HYPERTENSION
     Dosage: 60 MG (60 MG, 1 IN 1 D),
     Dates: start: 19940101
  3. NITROBID (GLYCERYL TRINITRATE) [Concomitant]
  4. VASOTEC [Concomitant]
  5. ASPIRIN [Concomitant]

REACTIONS (5)
  - BLINDNESS [None]
  - CATARACT [None]
  - CONDITION AGGRAVATED [None]
  - DIABETIC RETINOPATHY [None]
  - MUSCULAR WEAKNESS [None]
